FAERS Safety Report 5365836-1 (Version None)
Quarter: 2007Q2

REPORT INFORMATION
  Report Type: 
  Country: None (occurrence: None)
  Receive Date: 20070621
  Receipt Date: 20070620
  Transmission Date: 20071010
  Serious: Yes (Life-Threatening, Hospitalization)
  Sender: FDA-Public Use
  Company Number: CN-SHR-CN-2007-022927

PATIENT
  Age: 74 Year
  Sex: Female

DRUGS (1)
  1. ULTRAVIST 370 [Suspect]
     Indication: ARTERIOGRAM CORONARY
     Dosage: UNK, 1 DOSE
     Route: 050
     Dates: start: 20070619, end: 20070619

REACTIONS (2)
  - COMA [None]
  - SHOCK [None]
